FAERS Safety Report 9549012 (Version 1)
Quarter: 2013Q3

REPORT INFORMATION
  Report Type: Spontaneous
  Country: US (occurrence: None)
  Receive Date: 20130923
  Receipt Date: 20130923
  Transmission Date: 20140515
  Serious: No
  Sender: FDA-Public Use
  Company Number: None

PATIENT
  Age: 31 Year
  Sex: Female
  Weight: 61.24 kg

DRUGS (1)
  1. METRONIDAZOLE [Suspect]
     Indication: GASTROINTESTINAL DISORDER
     Dosage: 1 PILL TWICE DAILY TAKEN BY MOUTH
     Route: 048
     Dates: start: 20130912, end: 20130921

REACTIONS (9)
  - Headache [None]
  - Sinus congestion [None]
  - Dizziness [None]
  - Oropharyngeal pain [None]
  - Decreased appetite [None]
  - Urticaria [None]
  - Fatigue [None]
  - Pruritus [None]
  - Rash [None]
